FAERS Safety Report 5416405-6 (Version None)
Quarter: 2007Q3

REPORT INFORMATION
  Report Type: 
  Country: None (occurrence: None)
  Receive Date: 20070816
  Receipt Date: 20070809
  Transmission Date: 20080115
  Serious: Yes (Hospitalization)
  Sender: FDA-Public Use
  Company Number: US-BAXTER-2007BH006805

PATIENT
  Age: 21 Year
  Sex: Male
  Weight: 33 kg

DRUGS (23)
  1. ATIVAN [Suspect]
     Indication: AGITATION
     Route: 042
     Dates: start: 20070706, end: 20070803
  2. KEPPRA [Suspect]
     Indication: CONVULSION
     Route: 042
     Dates: start: 20070712
  3. FLUCONAZOLE [Suspect]
     Indication: DRUG USE FOR UNKNOWN INDICATION
     Route: 042
     Dates: start: 20070701
  4. NEXIUM [Suspect]
     Indication: DRUG USE FOR UNKNOWN INDICATION
     Route: 042
     Dates: start: 20070701
  5. CLONIDINE [Suspect]
     Indication: DRUG USE FOR UNKNOWN INDICATION
     Dosage: DOSE UNIT:UNKNOWN
     Route: 062
     Dates: start: 20070701
  6. METHADONE HCL [Suspect]
     Indication: DRUG WITHDRAWAL SYNDROME
     Dosage: DOSE UNIT:UNKNOWN
     Route: 048
     Dates: start: 20070701
  7. DIAZEPAM [Suspect]
     Indication: AGITATION
     Dosage: DOSE UNIT:UNKNOWN
     Route: 042
     Dates: start: 20070701
  8. DEMEROL [Suspect]
     Indication: PAIN
     Route: 042
     Dates: start: 20070701
  9. PAXIL [Suspect]
     Indication: DRUG USE FOR UNKNOWN INDICATION
     Route: 065
     Dates: start: 20070701
  10. PEPCID [Suspect]
     Indication: DRUG USE FOR UNKNOWN INDICATION
     Route: 042
     Dates: start: 20070701
  11. FLUCONAZOLE [Concomitant]
     Indication: CANDIDIASIS
     Route: 042
     Dates: start: 20070729, end: 20070803
  12. UNASYN [Concomitant]
     Indication: STAPHYLOCOCCAL INFECTION
     Route: 042
     Dates: start: 20070725, end: 20070803
  13. BISACODYL [Concomitant]
     Indication: CONSTIPATION
     Route: 054
     Dates: start: 20070706, end: 20070803
  14. CHLORAL HYDRATE [Concomitant]
     Indication: SEDATION
     Route: 048
     Dates: start: 20070726, end: 20070803
  15. DIAZEPAM [Concomitant]
     Indication: AGITATION
     Route: 042
     Dates: start: 20070729, end: 20070803
  16. CLONIDINE [Concomitant]
     Indication: NEURALGIA
     Route: 062
     Dates: start: 20070724, end: 20070803
  17. ESOMEPRAZOLE MAGNESIUM [Concomitant]
     Indication: GASTROOESOPHAGEAL REFLUX DISEASE
     Route: 042
     Dates: start: 20070729, end: 20070803
  18. MEPERIDINE HCL [Concomitant]
     Indication: PAIN
     Route: 042
     Dates: start: 20070730, end: 20070803
  19. METHADONE HCL [Concomitant]
     Indication: PAIN
     Route: 048
     Dates: start: 20070729, end: 20070803
  20. DEXMEDETOMIDINE [Concomitant]
     Indication: SEDATION
     Route: 042
     Dates: start: 20070729, end: 20070803
  21. KETAMINE HCL [Concomitant]
     Indication: SEDATION
     Route: 042
     Dates: start: 20070726, end: 20070803
  22. LEVETIRACETAM [Concomitant]
     Indication: CONVULSION
     Route: 042
     Dates: start: 20070712, end: 20070803
  23. PAROXETIN [Concomitant]
     Indication: DEPRESSION
     Route: 048
     Dates: start: 20070726, end: 20070803

REACTIONS (1)
  - PANCREATITIS [None]
